FAERS Safety Report 5605422-9 (Version None)
Quarter: 2008Q1

REPORT INFORMATION
  Report Type: 
  Country: None (occurrence: None)
  Receive Date: 20080125
  Receipt Date: 20080125
  Transmission Date: 20080703
  Serious: Yes (Hospitalization)
  Sender: FDA-Public Use
  Company Number: None

PATIENT
  Age: 83 Year
  Sex: Male
  Weight: 81 kg

DRUGS (2)
  1. AVANDAMET [Suspect]
     Indication: HYPERGLYCAEMIA
     Dosage: 100/4 DAILY
     Dates: start: 20071201, end: 20080117
  2. AMARYL [Suspect]
     Indication: HYPERGLYCAEMIA
     Dosage: 1 MG TWICE DAILY
     Dates: start: 20071201, end: 20080117

REACTIONS (3)
  - BLOOD GLUCOSE FLUCTUATION [None]
  - HYPOGLYCAEMIA [None]
  - UNRESPONSIVE TO STIMULI [None]
